FAERS Safety Report 6360408-4 (Version None)
Quarter: 2009Q3

REPORT INFORMATION
  Report Type: 
  Country: None (occurrence: None)
  Receive Date: 20090917
  Receipt Date: 20090909
  Transmission Date: 20100115
  Serious: Yes (Death, Other)
  Sender: FDA-Public Use
  Company Number: CA-AMGEN-QUU364005

PATIENT
  Sex: Female
  Weight: 40.9 kg

DRUGS (1)
  1. ENBREL [Suspect]
     Indication: RHEUMATOID ARTHRITIS
     Dates: start: 20060920, end: 20070804

REACTIONS (4)
  - DEATH [None]
  - GASTROINTESTINAL DISORDER [None]
  - LUNG DISORDER [None]
  - PANCREATITIS ACUTE [None]
